FAERS Safety Report 22223040 (Version 1)
Quarter: 2023Q2

REPORT INFORMATION
  Report Type: Spontaneous
  Country: US (occurrence: US)
  Receive Date: 20230418
  Receipt Date: 20230418
  Transmission Date: 20230721
  Serious: Yes (Hospitalization)
  Sender: FDA-Public Use
  Company Number: US-MYLANLABS-2023M1040608

PATIENT
  Age: 64 Year
  Sex: Female

DRUGS (6)
  1. ETOMIDATE [Suspect]
     Active Substance: ETOMIDATE
     Indication: General anaesthesia
     Dosage: 0.3 MILLIGRAM/KILOGRAM
     Route: 065
  2. ROCURONIUM [Suspect]
     Active Substance: ROCURONIUM BROMIDE
     Indication: General anaesthesia
     Dosage: 1 MILLIGRAM/KILOGRAM
     Route: 065
  3. KETAMINE [Suspect]
     Active Substance: KETAMINE
     Indication: General anaesthesia
     Dosage: 4 MICROGRAM/KILOGRAM; INFUSION; 4UG/KG/MINUTE
     Route: 042
  4. DEXMEDETOMIDINE [Concomitant]
     Active Substance: DEXMEDETOMIDINE
     Indication: Pain
     Dosage: 1.2 MICROGRAM/KILOGRAM; INFUSION
     Route: 042
  5. DEXMEDETOMIDINE [Concomitant]
     Active Substance: DEXMEDETOMIDINE
     Dosage: 0.6 MICROGRAM/KILOGRAM; 0.6UG/KG/HOUR
     Route: 042
  6. METHADONE [Concomitant]
     Active Substance: METHADONE HYDROCHLORIDE
     Indication: Pain
     Dosage: UNK; GIVEN IN 2 BOLUSES
     Route: 042

REACTIONS (1)
  - Mast cell activation syndrome [Recovered/Resolved]
